FAERS Safety Report 7069640-8 (Version None)
Quarter: 2010Q4

REPORT INFORMATION
  Report Type: 
  Country: None (occurrence: None)
  Receive Date: 20101028
  Receipt Date: 20100413
  Transmission Date: 20110411
  Serious: No
  Sender: FDA-Public Use
  Company Number: US-WYE-H14594010

PATIENT
  Sex: Female
  Weight: 99.88 kg

DRUGS (3)
  1. EFFEXOR [Suspect]
     Indication: DEPRESSION
     Dates: start: 20010101, end: 20060101
  2. EFFEXOR [Suspect]
     Dates: start: 20060101
  3. EFFEXOR [Suspect]

REACTIONS (1)
  - DRUG WITHDRAWAL SYNDROME [None]
